FAERS Safety Report 5332447-3 (Version None)
Quarter: 2007Q2

REPORT INFORMATION
  Report Type: 
  Country: None (occurrence: None)
  Receive Date: 20070523
  Receipt Date: 20070517
  Transmission Date: 20071010
  Serious: Yes (Hospitalization)
  Sender: FDA-Public Use
  Company Number: PHHO2004RU14949

PATIENT
  Age: 59 Year
  Sex: Female
  Weight: 98.7 kg

DRUGS (4)
  1. NATEGLINIDE [Suspect]
     Indication: GLUCOSE TOLERANCE IMPAIRED
     Dosage: LEVEL 1
     Route: 048
     Dates: start: 20030421
  2. NATEGLINIDE [Suspect]
     Dosage: LEVEL 2
     Route: 048
  3. VALSARTAN [Suspect]
     Indication: CARDIOVASCULAR DISORDER
     Dosage: LEVEL 1
     Route: 048
     Dates: start: 20030421
  4. VALSARTAN [Suspect]
     Dosage: LEVEL 2
     Route: 048

REACTIONS (9)
  - ANGINA PECTORIS [None]
  - AUTOIMMUNE THYROIDITIS [None]
  - BLOOD CHOLESTEROL INCREASED [None]
  - CARDIAC FAILURE [None]
  - CHEST PAIN [None]
  - CORONARY ARTERY DISEASE [None]
  - DYSPNOEA [None]
  - HEPATIC STEATOSIS [None]
  - HIGH DENSITY LIPOPROTEIN DECREASED [None]
